FAERS Safety Report 20993149 (Version 2)
Quarter: 2022Q2

REPORT INFORMATION
  Report Type: Report from Study
  Country: CN (occurrence: CN)
  Receive Date: 20220622
  Receipt Date: 20220629
  Transmission Date: 20220721
  Serious: Yes (Death)
  Sender: FDA-Public Use
  Company Number: CN-PFIZER INC-PV202200005182

PATIENT
  Age: 19 Year
  Sex: Female
  Weight: 55 kg

DRUGS (19)
  1. CYTARABINE [Suspect]
     Active Substance: CYTARABINE
     Indication: Acute myeloid leukaemia
     Dosage: 1500 MG, EVERY DAY (QD)
     Route: 040
     Dates: start: 20220526, end: 20220530
  2. UPROLESELAN [Suspect]
     Active Substance: UPROLESELAN
     Indication: Acute myeloid leukaemia
     Dosage: 800 MG (800/16 MILLIGRAM PER MILLILITRE), 1XDAY (QD)
     Route: 041
     Dates: start: 20220525, end: 20220525
  3. UPROLESELAN [Suspect]
     Active Substance: UPROLESELAN
     Dosage: 800 MG (800/16 MILLIGRAM PER MILLILITRE), EVERY 12 HOURS (Q12H)
     Route: 041
     Dates: start: 20220526, end: 20220601
  4. MITOXANTRONE [Suspect]
     Active Substance: MITOXANTRONE HYDROCHLORIDE
     Indication: Acute myeloid leukaemia
     Dosage: 9 MG, (25/12.5 MILLIGRAM PER MILLILITRE), 1X/DAY (QD)
     Route: 041
     Dates: start: 20220526, end: 20220530
  5. ETOPOSIDE [Suspect]
     Active Substance: ETOPOSIDE
     Indication: Acute myeloid leukaemia
     Dosage: 150 MG (0.1/5 GRAM PER MILLILITRE), 1X/DAY (QD)
     Route: 041
     Dates: start: 20220526, end: 20220528
  6. CEFOPERAZONE SODIUM\SULBACTAM SODIUM [Concomitant]
     Active Substance: CEFOPERAZONE SODIUM\SULBACTAM SODIUM
     Dosage: UNK
     Dates: start: 20220527, end: 20220601
  7. OMEPRAZOLE [Concomitant]
     Active Substance: OMEPRAZOLE
     Dosage: CAPSULE, DELAYED RELEASE
     Dates: start: 20220529, end: 20220613
  8. TEPRENONE [Concomitant]
     Active Substance: TEPRENONE
     Dosage: UNK
     Dates: start: 20220531, end: 20220613
  9. MEROPENEM [Concomitant]
     Active Substance: MEROPENEM
     Dosage: UNK
     Dates: start: 20220601, end: 20220613
  10. VANCOCIN [Concomitant]
     Active Substance: VANCOMYCIN HYDROCHLORIDE
     Dosage: UNK
     Dates: start: 20220601, end: 20220607
  11. BELLADONNA COMPOUND [Concomitant]
     Dosage: UNK
     Dates: start: 20220602, end: 20220604
  12. TYGACIL [Concomitant]
     Active Substance: TIGECYCLINE
     Dosage: UNK
     Dates: start: 20220607, end: 20220613
  13. MOXIFLOXACIN [Concomitant]
     Active Substance: MOXIFLOXACIN
     Dosage: UNK
     Dates: start: 20220607, end: 20220612
  14. CELEBREX [Concomitant]
     Active Substance: CELECOXIB
     Dosage: UNK
     Dates: start: 20220612, end: 20220613
  15. DEXTROSE [Concomitant]
     Active Substance: DEXTROSE
     Dosage: UNK
     Dates: start: 20220613, end: 20220613
  16. VITAMIN C [Concomitant]
     Active Substance: ASCORBIC ACID
     Dosage: UNK
     Dates: start: 20220613, end: 20220613
  17. POTASSIUM CHLORIDE [Concomitant]
     Active Substance: POTASSIUM CHLORIDE
     Dosage: UNK
     Dates: start: 20220613, end: 20220613
  18. COMPOUND SODIUM CHLORIDE [CALCIUM CHLORIDE;POTASSIUM CHLORIDE;SODIUM C [Concomitant]
     Dosage: UNK
     Dates: start: 20220613, end: 20220613
  19. GRANULOCYTE COLONY-STIMULATING FACTOR NOS [Concomitant]
     Active Substance: GRANULOCYTE COLONY-STIMULATING FACTOR NOS
     Dosage: UNK
     Dates: start: 20220604, end: 20220613

REACTIONS (1)
  - Septic shock [Fatal]

NARRATIVE: CASE EVENT DATE: 20220613
